FAERS Safety Report 16759654 (Version 1)
Quarter: 2019Q3

REPORT INFORMATION
  Report Type: Spontaneous
  Country: US (occurrence: US)
  Receive Date: 20190830
  Receipt Date: 20190830
  Transmission Date: 20191005
  Serious: Yes (Other)
  Sender: FDA-Public Use
  Company Number: None

PATIENT
  Age: 67 Year
  Sex: Female

DRUGS (1)
  1. PROLIA [Suspect]
     Active Substance: DENOSUMAB
     Indication: BONE DISORDER
     Dosage: ?          OTHER FREQUENCY:ONCE;?
     Route: 058

REACTIONS (8)
  - Pyrexia [None]
  - Neuralgia [None]
  - Fatigue [None]
  - Asthenia [None]
  - Electric shock [None]
  - Fall [None]
  - Hypoaesthesia [None]
  - Musculoskeletal pain [None]

NARRATIVE: CASE EVENT DATE: 20190816
